FAERS Safety Report 8231328-5 (Version None)
Quarter: 2012Q1

REPORT INFORMATION
  Report Type: 
  Country: None (occurrence: None)
  Receive Date: 20120323
  Receipt Date: 20120315
  Transmission Date: 20120608
  Serious: Yes (Hospitalization, Other)
  Sender: FDA-Public Use
  Company Number: HR-ABBOTT-12P-216-0899860-00

PATIENT
  Age: 76 Year
  Sex: Female
  Weight: 84 kg

DRUGS (6)
  1. LETROX [Concomitant]
     Indication: HYPOTHYROIDISM
     Route: 048
     Dates: start: 20110810
  2. GLICLADA [Concomitant]
     Indication: PRODUCT USED FOR UNKNOWN INDICATION
     Route: 048
     Dates: start: 20110810, end: 20111227
  3. FELODIPINE [Interacting]
     Indication: HYPERTENSION
     Dosage: DAILY DOSE:5 MG RAMIPRIL+ 5 MG FELODIPIN
     Route: 048
     Dates: start: 20110810, end: 20111227
  4. GLUCOBAY [Concomitant]
     Indication: PRODUCT USED FOR UNKNOWN INDICATION
     Dates: start: 20110810, end: 20111227
  5. FUROSEMIDE [Concomitant]
     Indication: PRODUCT USED FOR UNKNOWN INDICATION
     Route: 048
     Dates: start: 20110810
  6. TARKA [Suspect]
     Indication: HYPERTENSION
     Dosage: DAILY DOSE: 240MG/4MG
     Route: 048
     Dates: start: 20100428, end: 20111227

REACTIONS (11)
  - HYPOTHYROIDISM [None]
  - CARDIAC FAILURE CONGESTIVE [None]
  - DRUG INTERACTION [None]
  - CHEST DISCOMFORT [None]
  - BREATH SOUNDS ABNORMAL [None]
  - BLOOD CREATININE INCREASED [None]
  - DYSPNOEA [None]
  - NAUSEA [None]
  - BLOOD UREA INCREASED [None]
  - MEDICATION ERROR [None]
  - GALLOP RHYTHM PRESENT [None]
